FAERS Safety Report 6145670-5 (Version None)
Quarter: 2009Q2

REPORT INFORMATION
  Report Type: 
  Country: None (occurrence: None)
  Receive Date: 20090407
  Receipt Date: 20090326
  Transmission Date: 20091009
  Serious: Yes (Life-Threatening)
  Sender: FDA-Public Use
  Company Number: JP-JNJFOC-20090206409

PATIENT
  Sex: Female
  Weight: 62 kg

DRUGS (12)
  1. REMICADE [Suspect]
     Dosage: 2ND INFUSION
     Route: 042
  2. REMICADE [Suspect]
     Indication: RHEUMATOID ARTHRITIS
     Dosage: 1 INFUSION ON UNSPECIFIED DATE
     Route: 042
  3. RHEUMATREX [Suspect]
     Indication: RHEUMATOID ARTHRITIS
     Route: 048
  4. ROHYPNOL [Concomitant]
     Indication: INSOMNIA
     Route: 048
  5. LOXONIN [Concomitant]
     Indication: RHEUMATOID ARTHRITIS
     Route: 048
  6. SELBEX [Concomitant]
     Indication: GASTRITIS
     Route: 048
  7. ATARAX [Concomitant]
     Indication: INSOMNIA
     Route: 048
  8. IPRIFLAVONE [Concomitant]
     Indication: OSTEOPOROSIS
     Route: 048
  9. OMEPRAL [Concomitant]
     Indication: REFLUX OESOPHAGITIS
     Route: 048
  10. MEROPEN [Concomitant]
  11. FUROSEMIDE [Concomitant]
     Indication: HYPERTENSION
     Route: 048
  12. SPIRONOLACTONE [Concomitant]
     Indication: HYPERTENSION
     Route: 048

REACTIONS (3)
  - INFLAMMATION [None]
  - STAPHYLOCOCCAL INFECTION [None]
  - STOMATITIS [None]
